FAERS Safety Report 16513734 (Version 4)
Quarter: 2019Q3

REPORT INFORMATION
  Report Type: Spontaneous
  Country: JP (occurrence: JP)
  Receive Date: 20190701
  Receipt Date: 20190819
  Transmission Date: 20191004
  Serious: Yes (Death, Life-Threatening, Hospitalization, Other)
  Sender: FDA-Public Use
  Company Number: JP-009507513-1907JPN000526

PATIENT
  Age: 84 Year
  Sex: Male
  Weight: 40.4 kg

DRUGS (8)
  1. SOLULACT [Concomitant]
     Dosage: UNK
     Dates: start: 20190625
  2. AMANTADINE HYDROCHLORIDE. [Concomitant]
     Active Substance: AMANTADINE HYDROCHLORIDE
     Dosage: UNK
     Dates: start: 20190617
  3. POLAPREZINC [Concomitant]
     Active Substance: POLAPREZINC
     Dosage: UNK
     Dates: start: 20190612
  4. GLACTIV [Suspect]
     Active Substance: SITAGLIPTIN
     Indication: TYPE 2 DIABETES MELLITUS
     Dosage: 50 MG, EVERYDAY
     Route: 048
     Dates: start: 20190619, end: 20190625
  5. GLACTIV [Suspect]
     Active Substance: SITAGLIPTIN
     Dosage: 25 MG
     Route: 048
     Dates: start: 20190626, end: 20190627
  6. SOLDEM 3A [Concomitant]
     Active Substance: CARBOHYDRATES\POTASSIUM CHLORIDE\SODIUM CHLORIDE\SODIUM LACTATE
     Dosage: UNK
     Dates: start: 20190612
  7. ENALAPRIL MALEATE. [Concomitant]
     Active Substance: ENALAPRIL MALEATE
     Dosage: UNK
     Dates: start: 20190617
  8. INTRALIPOS [Concomitant]
     Active Substance: SOYBEAN OIL
     Dosage: UNK
     Dates: start: 20190619

REACTIONS (1)
  - Interstitial lung disease [Fatal]

NARRATIVE: CASE EVENT DATE: 20190627
